FAERS Safety Report 5856572-3 (Version None)
Quarter: 2008Q3

REPORT INFORMATION
  Report Type: 
  Country: None (occurrence: None)
  Receive Date: 20080822
  Receipt Date: 20080822
  Transmission Date: 20090109
  Serious: Yes (Hospitalization)
  Sender: FDA-Public Use
  Company Number: None

PATIENT
  Sex: Female
  Weight: 62.5964 kg

DRUGS (2)
  1. SOTRET [Suspect]
     Indication: ACNE
     Dosage: 40MG 1/DAY THEN 2/DAY
     Dates: start: 20080126, end: 20080413
  2. HPV VACCINE [Concomitant]

REACTIONS (9)
  - ABNORMAL BEHAVIOUR [None]
  - ACTIVITIES OF DAILY LIVING IMPAIRED [None]
  - APHASIA [None]
  - CONVULSION [None]
  - CRYING [None]
  - DRUG HYPERSENSITIVITY [None]
  - FEAR [None]
  - MASKED FACIES [None]
  - PSYCHOTIC DISORDER [None]
